FAERS Safety Report 20197512 (Version 1)
Quarter: 2021Q4

REPORT INFORMATION
  Report Type: Spontaneous
  Country: US (occurrence: US)
  Receive Date: 20211217
  Receipt Date: 20211217
  Transmission Date: 20220303
  Serious: No
  Sender: FDA-Public Use
  Company Number: US-ORG100016242-2021000323

PATIENT
  Age: 64 Year
  Sex: Female
  Weight: 57.9 kg

DRUGS (2)
  1. EXPAREL [Suspect]
     Active Substance: BUPIVACAINE
     Dosage: 1:1 MIXED WITH BUPIVACAINE; 133 MG EXPAREL WITH 10 ML OF BUPIVACAINE 0.5%
     Route: 065
     Dates: start: 20210708, end: 20210708
  2. BUPIVACAINE [Suspect]
     Active Substance: BUPIVACAINE
     Dosage: 10 ML; 1:1 MIXED WITH 133 MG OF EXPAREL
     Route: 065
     Dates: start: 20210708, end: 20210708

REACTIONS (1)
  - Skin discolouration [Unknown]

NARRATIVE: CASE EVENT DATE: 20210708
